FAERS Safety Report 18237295 (Version 2)
Quarter: 2022Q3

REPORT INFORMATION
  Report Type: Spontaneous
  Country: CA (occurrence: None)
  Receive Date: 20200907
  Receipt Date: 20220803
  Transmission Date: 20221026
  Serious: Yes (Hospitalization, Other)
  Sender: FDA-Public Use
  Company Number: 2020SF12621

PATIENT
  Age: 59 Year
  Sex: Female

DRUGS (24)
  1. LYNPARZA [Suspect]
     Active Substance: OLAPARIB
     Indication: Chemotherapy
     Route: 048
     Dates: start: 202201, end: 202202
  2. LYNPARZA [Suspect]
     Active Substance: OLAPARIB
     Indication: Chemotherapy
     Route: 048
     Dates: start: 202003, end: 20200417
  3. .DELTA.9-TETRAHYDROCANNABINOL\CANNABIDIOL\HERBALS [Suspect]
     Active Substance: .DELTA.9-TETRAHYDROCANNABINOL\CANNABIDIOL\HERBALS
     Indication: Sleep disorder
     Route: 048
  4. .DELTA.9-TETRAHYDROCANNABINOL\CANNABIDIOL\HERBALS [Suspect]
     Active Substance: .DELTA.9-TETRAHYDROCANNABINOL\CANNABIDIOL\HERBALS
     Indication: Muscle spasms
     Route: 048
  5. .DELTA.9-TETRAHYDROCANNABINOL\CANNABIDIOL\HERBALS [Suspect]
     Active Substance: .DELTA.9-TETRAHYDROCANNABINOL\CANNABIDIOL\HERBALS
     Indication: Pain
     Route: 048
  6. .DELTA.9-TETRAHYDROCANNABINOL\CANNABIDIOL\HERBALS [Suspect]
     Active Substance: .DELTA.9-TETRAHYDROCANNABINOL\CANNABIDIOL\HERBALS
     Indication: Anxiety
     Route: 048
  7. .DELTA.9-TETRAHYDROCANNABINOL\CANNABIDIOL\HERBALS [Suspect]
     Active Substance: .DELTA.9-TETRAHYDROCANNABINOL\CANNABIDIOL\HERBALS
     Indication: Nausea
     Route: 048
  8. CANNABIDIOL\HERBALS [Suspect]
     Active Substance: CANNABIDIOL\HERBALS
     Indication: Muscle spasms
     Dosage: ONE SOFTGEL WITH BREAKFAST AND ONE SOFTGEL IN THE EVENING
     Route: 065
     Dates: start: 2018
  9. CANNABIDIOL\HERBALS [Suspect]
     Active Substance: CANNABIDIOL\HERBALS
     Indication: Pain
     Dosage: ONE SOFTGEL WITH BREAKFAST AND ONE SOFTGEL IN THE EVENING
     Route: 065
     Dates: start: 2018
  10. CANNABIDIOL\HERBALS [Suspect]
     Active Substance: CANNABIDIOL\HERBALS
     Indication: Anxiety
     Dosage: ONE SOFTGEL WITH BREAKFAST AND ONE SOFTGEL IN THE EVENING
     Route: 065
     Dates: start: 2018
  11. CANNABIDIOL\HERBALS [Suspect]
     Active Substance: CANNABIDIOL\HERBALS
     Indication: Nausea
     Dosage: ONE SOFTGEL WITH BREAKFAST AND ONE SOFTGEL IN THE EVENING
     Route: 065
     Dates: start: 2018
  12. CANNABIDIOL\HERBALS [Suspect]
     Active Substance: CANNABIDIOL\HERBALS
     Indication: Sleep disorder
     Dosage: ONE SOFTGEL WITH BREAKFAST AND ONE SOFTGEL IN THE EVENING
     Route: 065
     Dates: start: 2018
  13. .DELTA.9-TETRAHYDROCANNABINOL\CANNABIDIOL\HERBALS [Suspect]
     Active Substance: .DELTA.9-TETRAHYDROCANNABINOL\CANNABIDIOL\HERBALS
     Indication: Sleep disorder
     Route: 048
  14. .DELTA.9-TETRAHYDROCANNABINOL\CANNABIDIOL\HERBALS [Suspect]
     Active Substance: .DELTA.9-TETRAHYDROCANNABINOL\CANNABIDIOL\HERBALS
     Indication: Muscle spasms
     Route: 048
  15. .DELTA.9-TETRAHYDROCANNABINOL\CANNABIDIOL\HERBALS [Suspect]
     Active Substance: .DELTA.9-TETRAHYDROCANNABINOL\CANNABIDIOL\HERBALS
     Indication: Pain
     Route: 048
  16. .DELTA.9-TETRAHYDROCANNABINOL\CANNABIDIOL\HERBALS [Suspect]
     Active Substance: .DELTA.9-TETRAHYDROCANNABINOL\CANNABIDIOL\HERBALS
     Indication: Nausea
     Route: 048
  17. HYDROCHLOROTHIAZIDE [Concomitant]
     Active Substance: HYDROCHLOROTHIAZIDE
     Route: 065
  18. LEVOTHYROXINE [Concomitant]
     Active Substance: LEVOTHYROXINE
     Route: 065
  19. METOCLOPRAMIDE HYDROCHLORIDE [Concomitant]
     Active Substance: METOCLOPRAMIDE HYDROCHLORIDE
     Route: 065
  20. POTASSIUM CHLORIDE [Concomitant]
     Active Substance: POTASSIUM CHLORIDE
     Route: 065
  21. SENNOSIDES [Concomitant]
     Active Substance: SENNOSIDES
     Route: 065
  22. VITAMIN B12 [Concomitant]
     Active Substance: CYANOCOBALAMIN
     Route: 065
  23. VITAMIN B6 [Concomitant]
     Active Substance: PYRIDOXINE HYDROCHLORIDE
     Route: 065
  24. VITAMIN D3 [Concomitant]
     Active Substance: CHOLECALCIFEROL
     Route: 065

REACTIONS (6)
  - Creatinine renal clearance decreased [Unknown]
  - Ovarian cancer recurrent [Unknown]
  - Ureteric obstruction [Unknown]
  - Blood creatinine increased [Recovering/Resolving]
  - Urinary tract infection [Unknown]
  - Ureteral stent insertion [Unknown]

NARRATIVE: CASE EVENT DATE: 20101101
